FAERS Safety Report 8173465-X (Version None)
Quarter: 2012Q1

REPORT INFORMATION
  Report Type: 
  Country: None (occurrence: None)
  Receive Date: 20120229
  Receipt Date: 20120220
  Transmission Date: 20120608
  Serious: Yes (Hospitalization, Other)
  Sender: FDA-Public Use
  Company Number: ES-AMGEN-ESPSP2012010910

PATIENT
  Age: 59 Year
  Sex: Male
  Weight: 67.5 kg

DRUGS (14)
  1. CINACALCET HYDROCHLORIDE [Suspect]
     Indication: HYPERPARATHYROIDISM SECONDARY
     Dosage: 30 MG, QD
     Dates: start: 20071101
  2. OSVAREN [Concomitant]
     Dosage: UNK UNK, QD
     Route: 048
     Dates: start: 20111207
  3. ASPIRIN [Concomitant]
     Dosage: 150 MG, QD
     Route: 048
     Dates: start: 20091116
  4. CLOPIDOGREL BISULFATE [Concomitant]
     Dosage: 75 MG, QD
     Route: 048
     Dates: start: 20091116
  5. BISOPROLOL FUMARATE [Concomitant]
     Dosage: 2.5 MG, QD
     Route: 048
     Dates: start: 20091116
  6. CINACALCET HYDROCHLORIDE [Suspect]
     Dosage: 60 MG, QD
     Route: 048
     Dates: start: 20100302
  7. ACFOL [Concomitant]
     Dosage: 5 MG, QD
     Route: 048
     Dates: start: 20091116
  8. EPOGEN [Concomitant]
     Dosage: 2000 IU, 3 TIMES/WK
     Route: 042
  9. MOLSIDAIN [Concomitant]
     Dosage: 6 MG, QD
     Route: 048
     Dates: start: 20091116
  10. IRON [Concomitant]
     Dosage: 100 MG, Q4WK
     Route: 042
  11. CINACALCET HYDROCHLORIDE [Suspect]
     Dosage: 30 MG, 3 TIMES/WK
  12. ATORVASTATIN [Concomitant]
     Dosage: 20 MG, QD
     Route: 048
     Dates: start: 20120206
  13. OMEPRAZOL ALTER [Concomitant]
     Dosage: 40 MG, QD
     Route: 048
     Dates: start: 20091116
  14. ASCORBIC ACID [Concomitant]
     Dosage: 1000 MG, 3 TIMES/WK
     Route: 042

REACTIONS (6)
  - BRONCHITIS [None]
  - DRUG HYPERSENSITIVITY [None]
  - CHRONIC OBSTRUCTIVE PULMONARY DISEASE [None]
  - VITAMIN A DEFICIENCY [None]
  - NIGHT BLINDNESS [None]
  - MYALGIA [None]
